FAERS Safety Report 21746608 (Version 1)
Quarter: 2022Q4

REPORT INFORMATION
  Report Type: Spontaneous
  Country: US (occurrence: None)
  Receive Date: 20221216
  Receipt Date: 20221216
  Transmission Date: 20230113
  Serious: Yes (Hospitalization)
  Sender: FDA-Public Use
  Company Number: None

PATIENT
  Sex: Female

DRUGS (21)
  1. COPAXONE [Suspect]
     Active Substance: GLATIRAMER ACETATE
     Indication: Multiple sclerosis
     Dosage: 20 MG/ML SUBCUTANEOUS??INECT 20MG UNDER THE SKIN (SUBCUTANEOUS INJECTION) EVERY DAY
     Route: 058
     Dates: start: 20150901
  2. ACYCLOVIR [Concomitant]
     Active Substance: ACYCLOVIR
  3. ATORVASTATIN [Concomitant]
     Active Substance: ATORVASTATIN
  4. DEVICE [Concomitant]
     Active Substance: DEVICE
  5. CALCIUM [Concomitant]
     Active Substance: CALCIUM
  6. CLARITIN [Concomitant]
     Active Substance: LORATADINE
  7. CORTEF [Concomitant]
     Active Substance: HYDROCORTISONE
  8. CYCLOBENZAPRINE [Concomitant]
     Active Substance: CYCLOBENZAPRINE
  9. DIAZEPAM [Concomitant]
     Active Substance: DIAZEPAM
  10. DICYCLOMINE POW [Concomitant]
  11. HYDROCOD/HOM SYP [Concomitant]
  12. LANTUS [Concomitant]
     Active Substance: INSULIN GLARGINE
  13. METHYLPREDNISOLONE [Concomitant]
     Active Substance: METHYLPREDNISOLONE
  14. MUCINEX DM [Concomitant]
     Active Substance: DEXTROMETHORPHAN HYDROBROMIDE\GUAIFENESIN
  15. NOVOLOG [Concomitant]
     Active Substance: INSULIN ASPART
  16. PANTOPRAZOLE [Concomitant]
     Active Substance: PANTOPRAZOLE
  17. PROTONIX [Concomitant]
     Active Substance: PANTOPRAZOLE SODIUM
  18. SENNA-LAX [Concomitant]
     Active Substance: SENNOSIDES
  19. SLEEP AID [Concomitant]
  20. TELMISARTAN [Concomitant]
     Active Substance: TELMISARTAN
  21. TEMAZEPAM [Concomitant]
     Active Substance: TEMAZEPAM

REACTIONS (5)
  - Injection site pruritus [None]
  - Multiple sclerosis relapse [None]
  - Dizziness [None]
  - Middle ear effusion [None]
  - Gait inability [None]
